FAERS Safety Report 18947580 (Version 3)
Quarter: 2021Q2

REPORT INFORMATION
  Report Type: Spontaneous
  Country: US (occurrence: US)
  Receive Date: 20210226
  Receipt Date: 20210430
  Transmission Date: 20210717
  Serious: No
  Sender: FDA-Public Use
  Company Number: US-AIMMUNE THERAPEUTICS, INC.-2020AIMT00432

PATIENT

DRUGS (2)
  1. PALFORZIA [Suspect]
     Active Substance: PEANUT
     Indication: FOOD ALLERGY
     Dosage: 6 MG, 1X/DAY
     Route: 048
     Dates: start: 20201001, end: 20201017
  2. PALFORZIA [Suspect]
     Active Substance: PEANUT
     Dosage: 3 MG, 1X/DAY
     Route: 048
     Dates: start: 20200917

REACTIONS (8)
  - Sensation of foreign body [Not Recovered/Not Resolved]
  - Chest pain [Recovering/Resolving]
  - Dyspepsia [Recovering/Resolving]
  - Dysphagia [Not Recovered/Not Resolved]
  - Eosinophilic oesophagitis [Not Recovered/Not Resolved]
  - Abdominal pain [Recovering/Resolving]
  - Odynophagia [Not Recovered/Not Resolved]
  - Regurgitation [Recovering/Resolving]

NARRATIVE: CASE EVENT DATE: 20201010
